FAERS Safety Report 18834412 (Version 2)
Quarter: 2021Q1

REPORT INFORMATION
  Report Type: Spontaneous
  Country: US (occurrence: US)
  Receive Date: 20210203
  Receipt Date: 20210211
  Transmission Date: 20210419
  Serious: No
  Sender: FDA-Public Use
  Company Number: US-SA-2021SA031658

PATIENT
  Sex: Male

DRUGS (1)
  1. DUPIXENT [Suspect]
     Active Substance: DUPILUMAB
     Indication: DERMATITIS ATOPIC
     Dosage: 300 MG, QOW
     Route: 058
     Dates: start: 20200205

REACTIONS (8)
  - Eye discharge [Unknown]
  - Weight increased [Unknown]
  - Pruritus [Unknown]
  - Blepharospasm [Unknown]
  - Pain [Unknown]
  - Pain in extremity [Unknown]
  - Chest pain [Unknown]
  - Oropharyngeal pain [Unknown]
